FAERS Safety Report 5024719-7 (Version None)
Quarter: 2006Q2

REPORT INFORMATION
  Report Type: 
  Country: None (occurrence: None)
  Receive Date: 20060426
  Receipt Date: 20060210
  Transmission Date: 20061013
  Serious: Yes (Other)
  Sender: FDA-Public Use
  Company Number: 2006021704

PATIENT
  Age: 85 Year
  Sex: Female
  Weight: 63.5036 kg

DRUGS (8)
  1. LYRICA [Suspect]
     Indication: MUSCLE SPASMS
     Dosage: 75 MG (75 MG, 1 IN 1 D)
     Dates: start: 20060101, end: 20060201
  2. LYRICA [Suspect]
     Indication: MUSCULOSKELETAL STIFFNESS
     Dosage: 75 MG (75 MG, 1 IN 1 D)
     Dates: start: 20060101, end: 20060201
  3. LOTREL [Concomitant]
  4. IRON (IRON) [Concomitant]
  5. CALCIUM (CALCIUM) [Concomitant]
  6. VITAMINS (VITAMINS) [Concomitant]
  7. ASPIRIN [Concomitant]
  8. XALCOM (LATANOPROST, TIMOLOL) [Concomitant]

REACTIONS (5)
  - DIZZINESS [None]
  - HYPOTENSION [None]
  - IRON DEFICIENCY [None]
  - OEDEMA PERIPHERAL [None]
  - VISION BLURRED [None]
